FAERS Safety Report 12797947 (Version 1)
Quarter: 2016Q3

REPORT INFORMATION
  Report Type: Spontaneous
  Country: US (occurrence: US)
  Receive Date: 20160930
  Receipt Date: 20160930
  Transmission Date: 20161109
  Serious: Yes (Other)
  Sender: FDA-Public Use
  Company Number: None

PATIENT
  Age: 29 Year
  Sex: Male
  Weight: 81 kg

DRUGS (1)
  1. HYOSCYAMINE SULFATE 0.125MG [Suspect]
     Active Substance: HYOSCYAMINE SULFATE
     Indication: IRRITABLE BOWEL SYNDROME
     Route: 060
     Dates: start: 20160518, end: 20160815

REACTIONS (7)
  - Insomnia [None]
  - Dysuria [None]
  - Vision blurred [None]
  - Mydriasis [None]
  - Product taste abnormal [None]
  - Middle insomnia [None]
  - Skin warm [None]

NARRATIVE: CASE EVENT DATE: 20160815
